FAERS Safety Report 10173542 (Version 1)
Quarter: 2014Q2

REPORT INFORMATION
  Report Type: Spontaneous
  Country: FR (occurrence: FR)
  Receive Date: 20140515
  Receipt Date: 20140515
  Transmission Date: 20141212
  Serious: Yes (Hospitalization)
  Sender: FDA-Public Use
  Company Number: FR-TEVA-480519ISR

PATIENT
  Age: 5 Decade
  Sex: Male

DRUGS (7)
  1. CARBAMAZEPINE [Suspect]
     Indication: EPILEPSY
     Route: 065
     Dates: start: 2010
  2. OLANZAPINE [Suspect]
     Indication: PSYCHOTIC DISORDER
     Dosage: RECEIVED 16M AFTER 1ST ADR EPISODE
     Route: 065
  3. PIPERACILLIN [Suspect]
     Indication: BRAIN ABSCESS
     Route: 065
  4. CYAMEMAZINE [Concomitant]
     Indication: PSYCHOTIC DISORDER
     Route: 065
  5. CEFOTAXIME [Concomitant]
     Indication: BRAIN ABSCESS
     Route: 065
  6. FOSFOMYCIN [Concomitant]
     Indication: BRAIN ABSCESS
     Route: 065
  7. RIFAMPICIN [Concomitant]
     Indication: BRAIN ABSCESS
     Route: 065

REACTIONS (1)
  - Drug reaction with eosinophilia and systemic symptoms [Recovered/Resolved]
